FAERS Safety Report 6678656-2 (Version None)
Quarter: 2010Q2

REPORT INFORMATION
  Report Type: 
  Country: None (occurrence: None)
  Receive Date: 20100413
  Receipt Date: 20100403
  Transmission Date: 20101027
  Serious: Yes (Other)
  Sender: FDA-Public Use
  Company Number: FR-PFIZER INC-2010043094

PATIENT
  Age: 69 Year
  Sex: Female

DRUGS (2)
  1. TAHOR [Suspect]
     Indication: HYPERCHOLESTEROLAEMIA
     Dosage: UNK
     Dates: start: 20100207, end: 20100330
  2. TAHOR [Suspect]
     Dosage: UNK
     Dates: start: 20100215, end: 20100330

REACTIONS (8)
  - ARTHRALGIA [None]
  - FATIGUE [None]
  - HEADACHE [None]
  - MUSCLE SPASMS [None]
  - OEDEMA PERIPHERAL [None]
  - PAIN IN EXTREMITY [None]
  - SINUS CONGESTION [None]
  - WEIGHT INCREASED [None]
